FAERS Safety Report 4958849-2 (Version None)
Quarter: 2006Q1

REPORT INFORMATION
  Report Type: 
  Country: None (occurrence: None)
  Receive Date: 20060324
  Receipt Date: 20060224
  Transmission Date: 20060701
  Serious: Yes (Hospitalization, Disabling)
  Sender: FDA-Public Use
  Company Number: 422740

PATIENT
  Age: 18 Year
  Sex: Female
  Weight: 63.5 kg

DRUGS (2)
  1. ACCUTANE [Suspect]
     Indication: ACNE
     Dosage: ORAL
     Route: 048
     Dates: start: 19990615, end: 20000615
  2. LORTAB [Concomitant]

REACTIONS (46)
  - ABDOMINAL PAIN [None]
  - ABORTION INDUCED [None]
  - ABSCESS [None]
  - ANAEMIA [None]
  - ANHEDONIA [None]
  - ANTINUCLEAR ANTIBODY INCREASED [None]
  - ANXIETY [None]
  - APPENDICECTOMY [None]
  - ARTHROPOD BITE [None]
  - ASTHMA [None]
  - ATELECTASIS [None]
  - BACK INJURY [None]
  - BLADDER DISORDER [None]
  - BLEEDING TIME PROLONGED [None]
  - BLOOD GLUCOSE INCREASED [None]
  - BLOOD KETONE BODY INCREASED [None]
  - CATHETER SITE RELATED REACTION [None]
  - COLITIS ULCERATIVE [None]
  - CONDITION AGGRAVATED [None]
  - DRUG EXPOSURE DURING PREGNANCY [None]
  - EDUCATIONAL PROBLEM [None]
  - FALL [None]
  - GLOMERULONEPHRITIS PROLIFERATIVE [None]
  - HAEMATURIA [None]
  - HYPERSENSITIVITY [None]
  - HYPOAESTHESIA [None]
  - INFLAMMATORY BOWEL DISEASE [None]
  - INJURY [None]
  - INTESTINAL HAEMORRHAGE [None]
  - JOINT INJURY [None]
  - JOINT SPRAIN [None]
  - KIDNEY FIBROSIS [None]
  - LUNG HYPERINFLATION [None]
  - MULTI-ORGAN DISORDER [None]
  - MUSCULOSKELETAL PAIN [None]
  - NECK INJURY [None]
  - NITRITE URINE PRESENT [None]
  - OBSTRUCTIVE AIRWAYS DISORDER [None]
  - PRE-ECLAMPSIA [None]
  - PREGNANCY [None]
  - RASH [None]
  - RENAL TUBULAR ATROPHY [None]
  - SINUS DISORDER [None]
  - URINARY RETENTION [None]
  - URINARY TRACT INFECTION [None]
  - URINE LEUKOCYTE ESTERASE POSITIVE [None]
